FAERS Safety Report 4313971-9 (Version None)
Quarter: 2004Q1

REPORT INFORMATION
  Report Type: 
  Country: None (occurrence: None)
  Receive Date: 20040308
  Receipt Date: 20040308
  Transmission Date: 20041129
  Serious: Yes (Disabling)
  Sender: FDA-Public Use
  Company Number: None

PATIENT
  Sex: Male
  Weight: 14.5151 kg

DRUGS (1)
  1. PHENYL CHLOR TAN CHLORPHENIRAMINE SUSPENSION 4.5 MG /5 ML AND PH HIGH [Suspect]
     Indication: MULTIPLE ALLERGIES
     Dosage: 1 TEASPO 2/ DAY ORAL
     Route: 048
     Dates: start: 20010801, end: 20040225

REACTIONS (2)
  - APRAXIA [None]
  - SPEECH DISORDER DEVELOPMENTAL [None]
